FAERS Safety Report 7376430-5 (Version None)
Quarter: 2011Q1

REPORT INFORMATION
  Report Type: 
  Country: None (occurrence: None)
  Receive Date: 20110325
  Receipt Date: 20110323
  Transmission Date: 20110831
  Serious: Yes (Other)
  Sender: FDA-Public Use
  Company Number: US-PFIZER INC-2011065611

PATIENT
  Sex: Female

DRUGS (7)
  1. PROZAC [Concomitant]
     Dosage: UNK
  2. BENADRYL [Concomitant]
     Indication: HYPERSENSITIVITY
     Dosage: UNK
  3. GALENIC /BELLADONNA/PHENOBARBITAL/ [Concomitant]
     Indication: AMOEBIASIS
     Dosage: UNK
  4. AMITRIPTYLINE [Concomitant]
     Indication: SLEEP DISORDER
     Dosage: UNK
  5. ACETYLSALICYLIC ACID [Concomitant]
     Dosage: 81 MG, UNK
  6. LISINOPRIL [Concomitant]
     Indication: BLOOD PRESSURE ABNORMAL
     Dosage: UNK
  7. DETROL LA [Suspect]
     Indication: HYPERTONIC BLADDER
     Dosage: 10 MG, UNK
     Route: 048

REACTIONS (1)
  - RENAL DISORDER [None]
